FAERS Safety Report 6135723-X (Version None)
Quarter: 2009Q1

REPORT INFORMATION
  Report Type: 
  Country: None (occurrence: None)
  Receive Date: 20090327
  Receipt Date: 20090315
  Transmission Date: 20090719
  Serious: Yes (Other)
  Sender: FDA-Public Use
  Company Number: US-PFIZER INC-2008015445

PATIENT
  Sex: Female
  Weight: 92.971 kg

DRUGS (4)
  1. CHANTIX [Suspect]
     Indication: SMOKING CESSATION THERAPY
     Dosage: 1 MG, 2X/DAY
     Route: 048
     Dates: start: 20080301
  2. ZOCOR [Concomitant]
     Indication: BLOOD CHOLESTEROL INCREASED
  3. TRICOR [Concomitant]
     Indication: BLOOD CHOLESTEROL INCREASED
  4. ZYPREXA [Concomitant]
     Indication: AFFECTIVE DISORDER

REACTIONS (5)
  - DEPRESSED MOOD [None]
  - HEART RATE INCREASED [None]
  - LOCALISED INFECTION [None]
  - SUICIDAL IDEATION [None]
  - WHEEZING [None]
